FAERS Safety Report 7779110-7 (Version None)
Quarter: 2011Q3

REPORT INFORMATION
  Report Type: 
  Country: None (occurrence: None)
  Receive Date: 20110926
  Receipt Date: 20110919
  Transmission Date: 20111222
  Serious: Yes (Hospitalization, Other)
  Sender: FDA-Public Use
  Company Number: US-AMGEN-KDL435662

PATIENT
  Age: 72 Year
  Sex: Female
  Weight: 96 kg

DRUGS (5)
  1. NEXIUM [Concomitant]
     Indication: GASTROOESOPHAGEAL REFLUX DISEASE
     Dosage: 40 MG, QD
     Dates: start: 20100310
  2. ENBREL [Suspect]
     Dosage: UNK
     Dates: start: 20080115
  3. ENBREL [Suspect]
     Dosage: 50 MG, QWK
     Route: 058
     Dates: start: 20071207
  4. GOLD [Concomitant]
  5. ENBREL [Suspect]
     Indication: PSORIATIC ARTHROPATHY
     Dosage: 50 MG, QWK
     Route: 058
     Dates: start: 20080115

REACTIONS (8)
  - RED BLOOD CELL COUNT DECREASED [None]
  - MICROCYTOSIS [None]
  - STRESS [None]
  - FASCIITIS [None]
  - FATIGUE [None]
  - HAEMOGLOBIN DECREASED [None]
  - ANAEMIA [None]
  - PSORIATIC ARTHROPATHY [None]
